FAERS Safety Report 6922495-1 (Version None)
Quarter: 2010Q3

REPORT INFORMATION
  Report Type: 
  Country: None (occurrence: None)
  Receive Date: 20100813
  Receipt Date: 20100729
  Transmission Date: 20110219
  Serious: No
  Sender: FDA-Public Use
  Company Number: US-BAYER-201025733NA

PATIENT
  Age: 47 Year
  Sex: Female
  Weight: 63 kg

DRUGS (3)
  1. MAGNEVIST [Suspect]
     Indication: NUCLEAR MAGNETIC RESONANCE IMAGING BRAIN
     Dosage: TOTAL DAILY DOSE: 14 ML  UNIT DOSE: 15 ML
     Dates: start: 20100611, end: 20100611
  2. ATIVAN [Concomitant]
     Indication: PREMEDICATION
  3. TRAZODONE HCL [Concomitant]

REACTIONS (4)
  - CHEST DISCOMFORT [None]
  - DYSPHAGIA [None]
  - HEADACHE [None]
  - PALPITATIONS [None]
